FAERS Safety Report 8607787-2 (Version None)
Quarter: 2012Q3

REPORT INFORMATION
  Report Type: 
  Country: None (occurrence: None)
  Receive Date: 20120821
  Receipt Date: 20120816
  Transmission Date: 20120928
  Serious: Yes (Disabling)
  Sender: FDA-Public Use
  Company Number: PHHY2012FR071343

PATIENT
  Age: 56 Year
  Sex: Female

DRUGS (2)
  1. COLCHICINE [Concomitant]
     Indication: GOUT
  2. RITALIN [Suspect]
     Indication: NARCOLEPSY
     Dosage: 40 MG, QD
     Route: 048

REACTIONS (2)
  - BLOOD CREATINE PHOSPHOKINASE INCREASED [None]
  - MYALGIA [None]
